FAERS Safety Report 9937040 (Version 1)
Quarter: 2014Q1

REPORT INFORMATION
  Report Type: Spontaneous
  Country: US (occurrence: None)
  Receive Date: 20140122
  Receipt Date: 20140122
  Transmission Date: 20141002
  Serious: No
  Sender: FDA-Public Use
  Company Number: AP356-00333-SPO-US

PATIENT
  Age: 35 Year
  Sex: Female

DRUGS (3)
  1. BELVIQ (LORCASERIN HYDROCHLORIDE) [Suspect]
     Indication: WEIGHT CONTROL
     Route: 048
     Dates: start: 201311, end: 201311
  2. LISINOPRIL (LISINOPRIL) [Concomitant]
  3. BYSTOLIC (NEBIBOLOL HYDROCHLORIDE) [Concomitant]

REACTIONS (3)
  - Feeling drunk [None]
  - Fall [None]
  - Fatigue [None]
